FAERS Safety Report 11739379 (Version 1)
Quarter: 2015Q4

REPORT INFORMATION
  Report Type: Spontaneous
  Country: US (occurrence: US)
  Receive Date: 20151113
  Receipt Date: 20151113
  Transmission Date: 20160304
  Serious: Yes (Death, Hospitalization, Other)
  Sender: FDA-Public Use
  Company Number: US-BAUSCH-BL-2015-026733

PATIENT
  Age: 49 Year
  Sex: Male
  Weight: 81.72 kg

DRUGS (1)
  1. XIFAXAN [Suspect]
     Active Substance: RIFAXIMIN
     Indication: LIVER DISORDER
     Route: 048
     Dates: start: 2014, end: 2015

REACTIONS (8)
  - Head injury [Unknown]
  - Ammonia increased [Unknown]
  - Ocular icterus [Unknown]
  - Hepatic enzyme increased [Unknown]
  - Hospice care [Unknown]
  - Hepatic failure [Fatal]
  - Haemorrhage [Unknown]
  - Fall [Unknown]

NARRATIVE: CASE EVENT DATE: 201501
